FAERS Safety Report 4558918-5 (Version None)
Quarter: 2005Q1

REPORT INFORMATION
  Report Type: 
  Country: None (occurrence: None)
  Receive Date: 20050121
  Receipt Date: 20041122
  Transmission Date: 20050727
  Serious: Yes (Hospitalization, Disabling)
  Sender: FDA-Public Use
  Company Number: DE-MERCK-0411DEU00441

PATIENT
  Age: 67 Year
  Sex: Male
  Weight: 94 kg

DRUGS (5)
  1. VIOXX [Suspect]
     Indication: COLLAGEN DISORDER
     Route: 048
     Dates: start: 20000710, end: 20040101
  2. PREDNISOLONE [Concomitant]
     Indication: COLLAGEN DISORDER
     Route: 065
     Dates: start: 20021031
  3. ACETAMINOPHEN [Concomitant]
     Route: 065
  4. LACTULOSE [Concomitant]
     Indication: CONSTIPATION
     Route: 065
  5. OMEPRAZOLE MAGNESIUM [Concomitant]
     Route: 065
     Dates: start: 20021104, end: 20021101

REACTIONS (2)
  - AMBLYOPIA [None]
  - RETINAL ARTERY OCCLUSION [None]
